FAERS Safety Report 12678075 (Version 1)
Quarter: 2016Q3

REPORT INFORMATION
  Report Type: Report from Study
  Country: CA (occurrence: CA)
  Receive Date: 20160823
  Receipt Date: 20160823
  Transmission Date: 20161109
  Serious: Yes (Hospitalization)
  Sender: FDA-Public Use
  Company Number: CA-JNJFOC-20160813881

PATIENT
  Age: 56 Year
  Sex: Male
  Weight: 58.97 kg

DRUGS (1)
  1. STELARA [Suspect]
     Active Substance: USTEKINUMAB
     Indication: PSORIASIS
     Route: 058
     Dates: start: 20160227

REACTIONS (3)
  - Pneumonia [Unknown]
  - Thrombosis [Unknown]
  - Metastasis [Unknown]

NARRATIVE: CASE EVENT DATE: 20160814
